FAERS Safety Report 4865950-0 (Version None)
Quarter: 2005Q4

REPORT INFORMATION
  Report Type: 
  Country: None (occurrence: None)
  Receive Date: 20051226
  Receipt Date: 20051130
  Transmission Date: 20060501
  Serious: Yes (Other)
  Sender: FDA-Public Use
  Company Number: PHBS2005JP17830

PATIENT

DRUGS (1)
  1. NEORAL [Suspect]
     Indication: WEGENER'S GRANULOMATOSIS
     Route: 065

REACTIONS (3)
  - DISEASE PROGRESSION [None]
  - MYOCARDITIS [None]
  - SYSTEMIC LUPUS ERYTHEMATOSUS [None]
